FAERS Safety Report 9278571 (Version 2)
Quarter: 2013Q2

REPORT INFORMATION
  Report Type: Report from Study
  Country: CA (occurrence: CA)
  Receive Date: 20130508
  Receipt Date: 20130510
  Transmission Date: 20140414
  Serious: Yes (Other)
  Sender: FDA-Public Use
  Company Number: CA-ROCHE-1222501

PATIENT
  Sex: Female
  Weight: 62 kg

DRUGS (8)
  1. AVASTIN [Suspect]
     Indication: GLIOBLASTOMA
     Route: 042
     Dates: start: 20130423, end: 20130423
  2. DECADRON [Concomitant]
  3. KEPPRA [Concomitant]
  4. FRISIUM [Concomitant]
  5. HUMULIN INSULIN [Concomitant]
  6. PANTOLOC [Concomitant]
  7. LIPITOR [Concomitant]
  8. EZETROL [Concomitant]

REACTIONS (2)
  - Blood glucose decreased [Unknown]
  - Aphagia [Unknown]
